FAERS Safety Report 9341842 (Version 3)
Quarter: 2014Q2

REPORT INFORMATION
  Report Type: Report from Study
  Country: JP (occurrence: JP)
  Receive Date: 20130611
  Receipt Date: 20140506
  Transmission Date: 20141212
  Serious: Yes (Death, Hospitalization)
  Sender: FDA-Public Use
  Company Number: JP-AMGEN-JPNCT2013040790

PATIENT
  Age: 65 Year
  Sex: Male
  Weight: 47 kg

DRUGS (17)
  1. DARBEPOETIN ALFA [Suspect]
     Indication: NEPHROGENIC ANAEMIA
     Dosage: 60 MUG, Q2WK
     Route: 058
     Dates: start: 20101105, end: 20131022
  2. MICARDIS [Concomitant]
     Dosage: UNK
     Route: 048
  3. CALBLOCK [Concomitant]
     Dosage: UNK
     Route: 048
  4. ADALAT CR [Concomitant]
     Dosage: UNK
     Route: 048
  5. LUPRAC [Concomitant]
     Dosage: UNK
     Route: 048
  6. LENDORMIN [Concomitant]
     Dosage: UNK
     Route: 048
  7. ATELEC [Concomitant]
     Dosage: UNK
     Route: 048
  8. SENNOSIDE [Concomitant]
     Dosage: UNK
     Route: 048
  9. LASIX [Concomitant]
     Indication: AMYLOIDOSIS
     Dosage: UNK
     Route: 048
  10. CRESTOR [Concomitant]
     Dosage: UNK
     Route: 048
  11. OMEPRAL [Concomitant]
     Dosage: UNK
     Route: 048
  12. HIRUDOID [Concomitant]
     Dosage: UNK
     Route: 061
  13. JUSO [Concomitant]
     Indication: AMYLOIDOSIS
     Dosage: UNK
     Route: 048
  14. ESPO [Concomitant]
     Indication: AMYLOIDOSIS
     Dosage: UNK
     Route: 065
  15. EPOETIN BETA [Concomitant]
     Indication: AMYLOIDOSIS
     Dosage: UNK
     Route: 065
  16. ZYLORIC [Concomitant]
     Dosage: UNK
     Route: 048
  17. NEXIUM [Concomitant]
     Dosage: UNK
     Route: 048

REACTIONS (3)
  - Pleural effusion [Recovering/Resolving]
  - Cardio-respiratory arrest [Fatal]
  - Pneumonia [Recovered/Resolved]
